FAERS Safety Report 5916665-9 (Version None)
Quarter: 2008Q4

REPORT INFORMATION
  Report Type: 
  Country: None (occurrence: None)
  Receive Date: 20081009
  Receipt Date: 20081002
  Transmission Date: 20090506
  Serious: Yes (Hospitalization, Other)
  Sender: FDA-Public Use
  Company Number: JPI-P-004937

PATIENT
  Age: 24 Year
  Sex: Male

DRUGS (5)
  1. XYREM [Suspect]
     Indication: CATAPLEXY
     Dosage: 4.5 GM (2.25 GM,2 IN 1 D), ORAL
     Route: 048
     Dates: start: 20051101
  2. XYREM [Suspect]
     Indication: NARCOLEPSY
     Dosage: 4.5 GM (2.25 GM,2 IN 1 D), ORAL
     Route: 048
     Dates: start: 20051101
  3. PROPRANOLOL [Concomitant]
  4. METOPROLOL (METTROPROLOL) [Concomitant]
  5. MODAFINIL [Concomitant]

REACTIONS (2)
  - CARDIAC OPERATION [None]
  - PROCEDURAL HEADACHE [None]
